FAERS Safety Report 4756247-8 (Version None)
Quarter: 2005Q3

REPORT INFORMATION
  Report Type: 
  Country: None (occurrence: None)
  Receive Date: 20050830
  Receipt Date: 20050513
  Transmission Date: 20060218
  Serious: Yes (Other)
  Sender: FDA-Public Use
  Company Number: US-GLAXOSMITHKLINE-A0558509A

PATIENT
  Age: 14 Year
  Sex: Male
  Weight: 78.9 kg

DRUGS (2)
  1. WELLBUTRIN [Suspect]
     Indication: DEPRESSION
     Route: 048
     Dates: start: 20050126, end: 20050512
  2. STRATTERA [Concomitant]
     Dosage: 100MG PER DAY
     Dates: start: 20030701

REACTIONS (2)
  - GRAND MAL CONVULSION [None]
  - HEADACHE [None]
